FAERS Safety Report 9814583 (Version 1)
Quarter: 2014Q1

REPORT INFORMATION
  Report Type: Spontaneous
  Country: US (occurrence: US)
  Receive Date: 20140113
  Receipt Date: 20140113
  Transmission Date: 20141002
  Serious: No
  Sender: FDA-Public Use
  Company Number: US-BAXTER-2013BAX053318

PATIENT
  Age: 12 Year
  Sex: Male
  Weight: 50 kg

DRUGS (4)
  1. GAMMAGARD LIQUID [Suspect]
     Indication: IMMUNODEFICIENCY COMMON VARIABLE
     Route: 058
     Dates: start: 20131222, end: 20131222
  2. GAMMAGARD LIQUID [Suspect]
     Indication: SELECTIVE IGA IMMUNODEFICIENCY
     Route: 058
  3. GAMMAGARD LIQUID [Suspect]
     Dates: start: 20131225, end: 20131225
  4. GAMMAGARD LIQUID [Suspect]
     Route: 058
     Dates: start: 201308

REACTIONS (5)
  - Accidental exposure to product [Recovered/Resolved]
  - Device breakage [Recovered/Resolved]
  - Underdose [Recovered/Resolved]
  - Skin discolouration [Recovered/Resolved]
  - Dark circles under eyes [Recovered/Resolved]
